FAERS Safety Report 8618012-0 (Version None)
Quarter: 2012Q3

REPORT INFORMATION
  Report Type: 
  Country: None (occurrence: None)
  Receive Date: 20120824
  Receipt Date: 20120131
  Transmission Date: 20120928
  Serious: No
  Sender: FDA-Public Use
  Company Number: US-ASTRAZENECA-2012SE06519

PATIENT
  Age: 69 Year
  Sex: Male
  Weight: 75.3 kg

DRUGS (1)
  1. SYMBICORT [Suspect]
     Indication: CHRONIC OBSTRUCTIVE PULMONARY DISEASE
     Dosage: 80/4.5, TWO PUFFS TWO TIMES A DAY
     Route: 055
     Dates: start: 20120112

REACTIONS (8)
  - ABNORMAL DREAMS [None]
  - INCORRECT DOSE ADMINISTERED [None]
  - OCCUPATIONAL PHYSICAL PROBLEM [None]
  - BACK PAIN [None]
  - DYSPNOEA [None]
  - VIRAL HEPATITIS CARRIER [None]
  - HEADACHE [None]
  - HYPERSOMNIA [None]
